FAERS Safety Report 11336597 (Version 2)
Quarter: 2015Q4

REPORT INFORMATION
  Report Type: Spontaneous
  Country: JP (occurrence: JP)
  Receive Date: 20150804
  Receipt Date: 20151021
  Transmission Date: 20160304
  Serious: Yes (Other)
  Sender: FDA-Public Use
  Company Number: JP-PFIZER INC-2015255609

PATIENT
  Age: 48 Year
  Sex: Female
  Weight: 49 kg

DRUGS (2)
  1. DUPHASTON [Suspect]
     Active Substance: DYDROGESTERONE
     Indication: MENOPAUSAL SYMPTOMS
     Dosage: 2 DF, 1X/DAY
     Route: 048
     Dates: end: 20150729
  2. PREMARIN [Suspect]
     Active Substance: ESTROGENS, CONJUGATED
     Indication: MENOPAUSAL SYMPTOMS
     Dosage: 1 DF, 1X/DAY
     Route: 048
     Dates: end: 20150729

REACTIONS (1)
  - Arteriovenous fistula thrombosis [Not Recovered/Not Resolved]

NARRATIVE: CASE EVENT DATE: 20150721
